FAERS Safety Report 6412402-2 (Version None)
Quarter: 2009Q4

REPORT INFORMATION
  Report Type: 
  Country: None (occurrence: None)
  Receive Date: 20091020
  Receipt Date: 20091005
  Transmission Date: 20100525
  Serious: Yes (Death)
  Sender: FDA-Public Use
  Company Number: 2009000965

PATIENT
  Age: 67 Year
  Sex: Female

DRUGS (8)
  1. TARCEVA [Suspect]
     Indication: NON-SMALL CELL LUNG CANCER
     Dosage: (150 MG, QD), ORAL
     Route: 048
     Dates: start: 20070823, end: 20070905
  2. PREDNISOLONE [Concomitant]
  3. AMLODIPINE [Concomitant]
  4. CARBOXYMETHYLCYSTEINE [Concomitant]
  5. GRANDPAZE-F [Concomitant]
  6. CETIRIZINE HCL [Concomitant]
  7. LEVODROPROPIZINE (LEVODROPROPIZINE) [Concomitant]
  8. SPIRONOLACTONE [Concomitant]

REACTIONS (2)
  - ACUTE RESPIRATORY DISTRESS SYNDROME [None]
  - PNEUMONIA [None]
